FAERS Safety Report 6233264-2 (Version None)
Quarter: 2009Q2

REPORT INFORMATION
  Report Type: 
  Country: None (occurrence: None)
  Receive Date: 20090617
  Receipt Date: 20090610
  Transmission Date: 20091009
  Serious: Yes (Death)
  Sender: FDA-Public Use
  Company Number: CY-AVENTIS-200913251EU

PATIENT
  Age: 20 Year
  Sex: Female
  Weight: 50 kg

DRUGS (4)
  1. ENOXAPARIN SODIUM [Suspect]
     Dates: start: 20090501, end: 20090512
  2. METRONIDAZOLE [Concomitant]
     Indication: PERITONITIS
     Dates: start: 20090507, end: 20090512
  3. ZINACEF                            /00454601/ [Concomitant]
     Indication: PERITONITIS
     Dates: start: 20090507, end: 20090512
  4. KEFLEX [Concomitant]
     Dates: start: 20090513, end: 20090516

REACTIONS (3)
  - CIRCULATORY COLLAPSE [None]
  - DYSPHORIA [None]
  - PULMONARY EMBOLISM [None]
